FAERS Safety Report 5629976-1 (Version None)
Quarter: 2008Q1

REPORT INFORMATION
  Report Type: 
  Country: None (occurrence: None)
  Receive Date: 20080218
  Receipt Date: 20080207
  Transmission Date: 20080703
  Serious: No
  Sender: FDA-Public Use
  Company Number: US-ELI_LILLY_AND_COMPANY-US200710005263

PATIENT
  Sex: Female

DRUGS (6)
  1. CYMBALTA [Suspect]
     Indication: FIBROMYALGIA
     Dosage: 40 MG, UNK
     Route: 048
     Dates: start: 20060501
  2. CYMBALTA [Suspect]
     Dosage: 60 MG, DAILY (1/D)
     Route: 048
     Dates: end: 20071016
  3. SYNTHROID [Concomitant]
     Indication: THYROIDECTOMY
     Dates: start: 20070101
  4. NEXIUM [Concomitant]
     Indication: REFLUX OESOPHAGITIS
  5. CELEXA [Concomitant]
     Dosage: 20 MG, UNK
  6. FLEXERIL [Concomitant]
     Dosage: 10 MG, UNK

REACTIONS (8)
  - ACQUIRED OESOPHAGEAL WEB [None]
  - DIZZINESS [None]
  - FATIGUE [None]
  - GASTRITIS [None]
  - INSOMNIA [None]
  - OESOPHAGEAL DISORDER [None]
  - OESOPHAGEAL STENOSIS [None]
  - SLEEP APNOEA SYNDROME [None]
